FAERS Safety Report 5848339-7 (Version None)
Quarter: 2008Q3

REPORT INFORMATION
  Report Type: 
  Country: None (occurrence: None)
  Receive Date: 20080818
  Receipt Date: 20080717
  Transmission Date: 20090109
  Serious: No
  Sender: FDA-Public Use
  Company Number: US-BAYER-200829235NA

PATIENT
  Age: 56 Year
  Sex: Female
  Weight: 73 kg

DRUGS (6)
  1. ULTRAVIST 370 [Suspect]
     Indication: COMPUTERISED TOMOGRAM ABDOMEN
     Dosage: TOTAL DAILY DOSE: 100 ML  UNIT DOSE: 500 ML
     Route: 042
     Dates: start: 20080717, end: 20080717
  2. NEXIUM [Concomitant]
  3. LIPITOR [Concomitant]
  4. PROMETRIUM [Concomitant]
  5. CENESTIN [Concomitant]
  6. CONTRAST MEDIA [Concomitant]
     Route: 048
     Dates: start: 20080717, end: 20080717

REACTIONS (2)
  - OCULAR HYPERAEMIA [None]
  - URTICARIA [None]
